FAERS Safety Report 14456493 (Version 2)
Quarter: 2018Q2

REPORT INFORMATION
  Report Type: Spontaneous
  Country: JP (occurrence: JP)
  Receive Date: 20180130
  Receipt Date: 20180615
  Transmission Date: 20180711
  Serious: Yes (Death, Life-Threatening)
  Sender: FDA-Public Use
  Company Number: JP-ACTELION-A-CH2018-166388

PATIENT
  Age: 79 Year
  Sex: Female

DRUGS (9)
  1. OPSUMIT [Suspect]
     Active Substance: MACITENTAN
     Indication: PULMONARY ARTERIAL HYPERTENSION
     Dosage: 10 MG, QD
     Route: 048
     Dates: start: 20171214, end: 20180102
  2. MUCODYNE [Concomitant]
     Active Substance: CARBOCYSTEINE
  3. NORADRENALINE [Concomitant]
     Active Substance: NOREPINEPHRINE
  4. FENTANYL. [Concomitant]
     Active Substance: FENTANYL
  5. PROPOFOL. [Concomitant]
     Active Substance: PROPOFOL
  6. NEXIUM [Concomitant]
     Active Substance: ESOMEPRAZOLE MAGNESIUM
  7. PREDONINE [Concomitant]
     Active Substance: PREDNISOLONE
  8. FLOLAN [Concomitant]
     Active Substance: EPOPROSTENOL SODIUM
  9. GASMOTIN [Concomitant]
     Active Substance: MOSAPRIDE CITRATE

REACTIONS (4)
  - Respiratory failure [Fatal]
  - Pulmonary hypertension [Fatal]
  - Respiratory disorder [Fatal]
  - Haemodynamic instability [Fatal]
